FAERS Safety Report 21812648 (Version 1)
Quarter: 2022Q4

REPORT INFORMATION
  Report Type: Spontaneous
  Country: US (occurrence: None)
  Receive Date: 20221231
  Receipt Date: 20221231
  Transmission Date: 20230113
  Serious: Yes (Life-Threatening, Hospitalization)
  Sender: FDA-Public Use
  Company Number: None

PATIENT
  Age: 75 Year
  Sex: Male
  Weight: 74.25 kg

DRUGS (1)
  1. NP THYROID [Suspect]
     Active Substance: LEVOTHYROXINE\LIOTHYRONINE
     Indication: Blood thyroid stimulating hormone increased
     Dosage: OTHER QUANTITY : 1 TABLET(S);?
     Route: 048

REACTIONS (2)
  - Psychotic disorder [None]
  - Delirium [None]

NARRATIVE: CASE EVENT DATE: 20221213
